FAERS Safety Report 9862236 (Version 1)
Quarter: 2014Q1

REPORT INFORMATION
  Report Type: Spontaneous
  Country: US (occurrence: US)
  Receive Date: 20140203
  Receipt Date: 20140203
  Transmission Date: 20141002
  Serious: No
  Sender: FDA-Public Use
  Company Number: US-OPTIMER-20130412

PATIENT
  Age: 72 Year
  Sex: Female

DRUGS (8)
  1. DIFICID [Suspect]
     Indication: CLOSTRIDIUM DIFFICILE COLITIS
     Dosage: 200 MG, BID
     Route: 048
     Dates: start: 20130708
  2. DIFICID [Suspect]
     Dosage: 200 MG, BID
     Route: 048
     Dates: start: 20131010
  3. DIFICID [Suspect]
     Dosage: 200 MG, BID
     Route: 048
     Dates: start: 20131017
  4. FLORASTOR [Concomitant]
     Dosage: UNK
  5. TRAVATAN [Concomitant]
     Dosage: UNK
  6. LIALDA [Concomitant]
     Dosage: UNK
  7. BUDESONIDE [Concomitant]
     Dosage: UNK
  8. LEVOTHYROXINE [Concomitant]
     Dosage: UNK

REACTIONS (4)
  - Diarrhoea [Not Recovered/Not Resolved]
  - Clostridium difficile colitis [Unknown]
  - Disease recurrence [Unknown]
  - Drug ineffective [Unknown]
